FAERS Safety Report 7535800-2 (Version None)
Quarter: 2011Q2

REPORT INFORMATION
  Report Type: 
  Country: None (occurrence: None)
  Receive Date: 20110602
  Receipt Date: 20110526
  Transmission Date: 20111010
  Serious: Yes (Hospitalization)
  Sender: FDA-Public Use
  Company Number: CIP11001235

PATIENT
  Age: 58 Year
  Sex: Female

DRUGS (16)
  1. MULTIVITAMIN /00097801/ (ASCORBIC ACID, CALCIUM PANTOTHENATE, ERGOCALC [Concomitant]
  2. LAMICTAL [Concomitant]
  3. NITROFURANTOIN MONOHYDRATE/MACROCRYSTALS [Suspect]
     Indication: PROPHYLAXIS URINARY TRACT INFECTION
     Dosage: 100 MG TWICE DAY, 100 MG  DAILY, ORAL
     Route: 048
     Dates: start: 20110408
  4. NITROFURANTOIN MONOHYDRATE/MACROCRYSTALS [Suspect]
     Indication: URINARY TRACT INFECTION
     Dosage: 100 MG TWICE DAY, 100 MG  DAILY, ORAL
     Route: 048
     Dates: start: 20110408
  5. NITROFURANTOIN MONOHYDRATE/MACROCRYSTALS [Suspect]
     Indication: PROPHYLAXIS URINARY TRACT INFECTION
     Dosage: 100 MG TWICE DAY, 100 MG  DAILY, ORAL
     Route: 048
     Dates: start: 20110406, end: 20110407
  6. NITROFURANTOIN MONOHYDRATE/MACROCRYSTALS [Suspect]
     Indication: URINARY TRACT INFECTION
     Dosage: 100 MG TWICE DAY, 100 MG  DAILY, ORAL
     Route: 048
     Dates: start: 20110406, end: 20110407
  7. DEPAKOTE [Concomitant]
  8. OTHER DRUGS FOR FUNCTIONAL BOWEL  DISORDERS [Concomitant]
  9. MIACALCIN [Concomitant]
  10. ERGOCALCIFEROL [Concomitant]
  11. MAGNESIUM OXIDE (MAGNESIUM OXIDE) [Concomitant]
  12. BISACODYL (BISACODYL) [Concomitant]
  13. ENULOSE [Concomitant]
  14. CRANBERRY /01512301/ (VACCINIUM MACROCARPON) [Concomitant]
  15. AMLODIPINE [Concomitant]
  16. FERROUS SULFATE TAB [Concomitant]

REACTIONS (11)
  - HYPERHIDROSIS [None]
  - HYPOGLYCAEMIA [None]
  - SHOCK HYPOGLYCAEMIC [None]
  - BLOOD GLUCOSE FLUCTUATION [None]
  - LETHARGY [None]
  - DEHYDRATION [None]
  - URINARY TRACT INFECTION [None]
  - TREMOR [None]
  - HEAD TITUBATION [None]
  - MIOSIS [None]
  - SINUS BRADYCARDIA [None]
